FAERS Safety Report 5993615-0 (Version None)
Quarter: 2008Q4

REPORT INFORMATION
  Report Type: 
  Country: None (occurrence: None)
  Receive Date: 20081212
  Receipt Date: 20081208
  Transmission Date: 20090506
  Serious: Yes (Life-Threatening)
  Sender: FDA-Public Use
  Company Number: PHHY2008FR31574

PATIENT

DRUGS (1)
  1. TAREG [Suspect]
     Dosage: 160 MG, DAILY
     Route: 064
     Dates: start: 20050101, end: 20081030

REACTIONS (2)
  - CONGENITAL RENAL DISORDER [None]
  - DRUG EXPOSURE DURING PREGNANCY [None]
